FAERS Safety Report 12480157 (Version 2)
Quarter: 2019Q2

REPORT INFORMATION
  Report Type: Spontaneous
  Country: DK (occurrence: DK)
  Receive Date: 20160620
  Receipt Date: 20190405
  Transmission Date: 20190711
  Serious: Yes (Other)
  Sender: FDA-Public Use
  Company Number: DK-ACCORD-041718

PATIENT
  Age: 69 Year
  Sex: Female

DRUGS (3)
  1. FLUOROURACIL. [Suspect]
     Active Substance: FLUOROURACIL
     Indication: COLORECTAL CANCER
     Dosage: FOLLOWED BY 2400 MG/M^2 OF 5-FU AS A CONTINUOUS IV INFUSION FOR 46 HOURS.
     Route: 040
  2. FOLINIC ACID [Concomitant]
     Active Substance: LEUCOVORIN
     Indication: COLORECTAL CANCER
     Route: 040
  3. OXALIPLATIN. [Concomitant]
     Active Substance: OXALIPLATIN
     Indication: COLORECTAL CANCER
     Route: 040

REACTIONS (3)
  - Cardiac failure [Recovered/Resolved]
  - Pulmonary oedema [Recovered/Resolved]
  - Left ventricular dysfunction [Recovered/Resolved]
